FAERS Safety Report 20554265 (Version 2)
Quarter: 2022Q3

REPORT INFORMATION
  Report Type: Report from Study
  Country: FR (occurrence: FR)
  Receive Date: 20220304
  Receipt Date: 20220704
  Transmission Date: 20221026
  Serious: No
  Sender: FDA-Public Use
  Company Number: FR-NOVARTISPH-NVSC2022FR048306

PATIENT
  Sex: Male

DRUGS (2)
  1. TABRECTA [Suspect]
     Active Substance: CAPMATINIB
     Indication: Non-small cell lung cancer
     Dosage: 800 MG, QD
     Route: 065
     Dates: start: 20200828
  2. TABRECTA [Suspect]
     Active Substance: CAPMATINIB
     Dosage: 100 MG (DAILY IN THE MORNING AND IN THE EVENING)
     Route: 065
     Dates: start: 202108

REACTIONS (2)
  - Oedema [Unknown]
  - Oedema peripheral [Not Recovered/Not Resolved]
